FAERS Safety Report 25094171 (Version 1)
Quarter: 2025Q1

REPORT INFORMATION
  Report Type: Spontaneous
  Country: US (occurrence: None)
  Receive Date: 20250318
  Receipt Date: 20250318
  Transmission Date: 20250408
  Serious: Yes (Hospitalization)
  Sender: FDA-CTU
  Company Number: None

PATIENT
  Sex: Female

DRUGS (11)
  1. LENALIDOMIDE [Suspect]
     Active Substance: LENALIDOMIDE
     Indication: Plasma cell myeloma
     Dosage: FREQUENCY : DAILY;?
     Route: 048
     Dates: start: 20230913
  2. ACETAMIN TAB 500MG [Concomitant]
  3. ALBUTEROL AER HFA [Concomitant]
  4. ASCORBIC ACD POW [Concomitant]
  5. ASPIRIN CHW 81MG [Concomitant]
  6. CYANOCOBAL POW [Concomitant]
  7. FLONASE ALGY SPR 50MCG [Concomitant]
  8. IMODIUM MS TAB RELIEF [Concomitant]
  9. MAGNESIUM-OX TAB 400MG [Concomitant]
  10. MULTIVITAMIN TAB DAILY [Concomitant]
  11. ONDANSETRON TAB 4MG ODT [Concomitant]

REACTIONS (1)
  - Hospitalisation [None]
